FAERS Safety Report 7245187-0 (Version None)
Quarter: 2011Q1

REPORT INFORMATION
  Report Type: 
  Country: None (occurrence: None)
  Receive Date: 20110126
  Receipt Date: 20110118
  Transmission Date: 20110831
  Serious: Yes (Death)
  Sender: FDA-Public Use
  Company Number: US-AMGEN-USASP2011003556

PATIENT
  Age: 90 Year
  Sex: Female

DRUGS (3)
  1. BONIVA [Concomitant]
  2. ERGOCALCIFEROL [Concomitant]
  3. PROLIA [Suspect]
     Indication: OSTEOPOROSIS
     Dosage: 60 MG, UNK
     Dates: start: 20100914

REACTIONS (1)
  - DEATH [None]
